FAERS Safety Report 11133071 (Version 2)
Quarter: 2015Q3

REPORT INFORMATION
  Report Type: Report from Study
  Country: US (occurrence: US)
  Receive Date: 20150522
  Receipt Date: 20150701
  Transmission Date: 20151125
  Serious: Yes (Hospitalization, Other)
  Sender: FDA-Public Use
  Company Number: US-GILEAD-2015-0154583

PATIENT
  Age: 71 Year
  Sex: Female

DRUGS (6)
  1. AVAPRO [Concomitant]
     Active Substance: IRBESARTAN
  2. LASIX [Concomitant]
     Active Substance: FUROSEMIDE
  3. AMBRISENTAN [Suspect]
     Active Substance: AMBRISENTAN
     Indication: PULMONARY HYPERTENSION
     Dosage: 5 MG, QD
     Route: 065
     Dates: start: 20101105
  4. TRAMADOL. [Concomitant]
     Active Substance: TRAMADOL
  5. ZETIA [Concomitant]
     Active Substance: EZETIMIBE
  6. CARVEDILOL. [Concomitant]
     Active Substance: CARVEDILOL

REACTIONS (1)
  - Knee arthroplasty [Unknown]
